FAERS Safety Report 13219808 (Version 3)
Quarter: 2018Q1

REPORT INFORMATION
  Report Type: Spontaneous
  Country: US (occurrence: US)
  Receive Date: 20170210
  Receipt Date: 20180201
  Transmission Date: 20180508
  Serious: No
  Sender: FDA-Public Use
  Company Number: US-ASTRAZENECA-2017SE12251

PATIENT
  Age: 65 Year
  Sex: Female
  Weight: 74.8 kg

DRUGS (5)
  1. TUDORZA PRESSAIR [Suspect]
     Active Substance: ACLIDINIUM BROMIDE
     Indication: CHRONIC OBSTRUCTIVE PULMONARY DISEASE
     Route: 055
     Dates: start: 2014
  2. TUDORZA PRESSAIR [Suspect]
     Active Substance: ACLIDINIUM BROMIDE
     Indication: CHRONIC OBSTRUCTIVE PULMONARY DISEASE
     Dosage: ONE PUFF PER DAY
     Route: 055
  3. TUDORZA PRESSAIR [Suspect]
     Active Substance: ACLIDINIUM BROMIDE
     Indication: ASTHMA
     Route: 055
     Dates: start: 2014
  4. TUDORZA PRESSAIR [Suspect]
     Active Substance: ACLIDINIUM BROMIDE
     Indication: ASTHMA
     Dosage: ONE PUFF PER DAY
     Route: 055
  5. ADVAIR HFA [Concomitant]
     Active Substance: FLUTICASONE PROPIONATE\SALMETEROL XINAFOATE
     Indication: ASTHMA
     Dosage: DAILY
     Route: 055
     Dates: start: 2007

REACTIONS (7)
  - Intentional product misuse [Unknown]
  - Drug dose omission [Unknown]
  - Product use in unapproved indication [Unknown]
  - Device issue [Unknown]
  - Weight increased [Unknown]
  - Chest discomfort [Unknown]
  - Off label use [Unknown]

NARRATIVE: CASE EVENT DATE: 2014
